FAERS Safety Report 5153119-4 (Version None)
Quarter: 2006Q4

REPORT INFORMATION
  Report Type: 
  Country: None (occurrence: None)
  Receive Date: 20061117
  Receipt Date: 20060512
  Transmission Date: 20070319
  Serious: Yes (Hospitalization)
  Sender: FDA-Public Use
  Company Number: FR-GLAXOSMITHKLINE-B0424586A

PATIENT
  Age: 65 Year
  Sex: Male

DRUGS (5)
  1. ABACAVIR [Suspect]
     Indication: HIV INFECTION
     Dosage: 1TAB PER DAY
     Route: 048
     Dates: start: 20060420, end: 20060427
  2. KALETRA [Suspect]
     Indication: HIV INFECTION
     Route: 065
  3. FUCIDINE CAP [Suspect]
     Indication: OSTEITIS
     Dosage: 6TAB PER DAY
     Route: 048
     Dates: start: 20060101, end: 20060427
  4. ZOVIRAX [Concomitant]
     Indication: ENCEPHALITIS
     Route: 065
  5. OFLOCET [Concomitant]
     Route: 065

REACTIONS (11)
  - CHILLS [None]
  - CLONUS [None]
  - ENCEPHALITIS [None]
  - GAMMA-GLUTAMYLTRANSFERASE INCREASED [None]
  - HYPERBILIRUBINAEMIA [None]
  - HYPERSENSITIVITY [None]
  - HYPERTHERMIA [None]
  - JAUNDICE [None]
  - MENINGEAL DISORDER [None]
  - MENINGOENCEPHALITIS HERPETIC [None]
  - TRANSAMINASES INCREASED [None]
